FAERS Safety Report 17314765 (Version 1)
Quarter: 2020Q1

REPORT INFORMATION
  Report Type: Spontaneous
  Country: US (occurrence: US)
  Receive Date: 20200108
  Receipt Date: 20200108
  Transmission Date: 20200409
  Serious: No
  Sender: FDA-Public Use
  Company Number: None

PATIENT
  Age: 67 Year
  Sex: Male

DRUGS (3)
  1. TOBRAMYCIN 300MG/5ML 20ML NEB (20) [Suspect]
     Active Substance: TOBRAMYCIN
     Indication: LOWER RESPIRATORY TRACT INFECTION
     Dosage: ?          OTHER FREQUENCY:AS DIRECTED;?
     Route: 055
     Dates: start: 20170114
  2. TOBRAMYCIN 300MG/5ML 20ML NEB (20) [Suspect]
     Active Substance: TOBRAMYCIN
     Indication: BRONCHIECTASIS
     Dosage: ?          OTHER FREQUENCY:AS DIRECTED;?
     Route: 055
     Dates: start: 20170114
  3. TOBRAMYCIN 300MG/5ML 20ML NEB (20) [Suspect]
     Active Substance: TOBRAMYCIN
     Indication: BRONCHIECTASIS
     Dosage: ?          OTHER FREQUENCY:AS DIRECTED;?
     Route: 055

REACTIONS (2)
  - Therapy cessation [None]
  - Product use issue [None]

NARRATIVE: CASE EVENT DATE: 201912
